FAERS Safety Report 8213065-6 (Version None)
Quarter: 2012Q1

REPORT INFORMATION
  Report Type: 
  Country: None (occurrence: None)
  Receive Date: 20120228
  Receipt Date: 20110817
  Transmission Date: 20120608
  Serious: Yes (Hospitalization, Other)
  Sender: FDA-Public Use
  Company Number: RB-31671-2011

PATIENT
  Age: 24 Month

DRUGS (1)
  1. SUBOXONE [Suspect]
     Indication: ACCIDENTAL EXPOSURE
     Dates: start: 20110718, end: 20110718

REACTIONS (1)
  - ACCIDENTAL EXPOSURE [None]
